FAERS Safety Report 7956270-6 (Version None)
Quarter: 2011Q4

REPORT INFORMATION
  Report Type: 
  Country: None (occurrence: None)
  Receive Date: 20111109
  Receipt Date: 20111026
  Transmission Date: 20120403
  Serious: Yes (Other)
  Sender: FDA-Public Use
  Company Number: 2011PROUSA00715

PATIENT
  Age: 75 Year
  Sex: Male

DRUGS (6)
  1. PROVENGE [Suspect]
     Dosage: 250 ML, SINGLE, INTRAVENOUS
     Route: 042
     Dates: start: 20101111, end: 20101111
  2. LIPITOR [Concomitant]
  3. MULTIVITAMINS (ASCORBIC ACID, ERGOCALCIFEROL, FOLIC ACID, NICOTINAMIDE [Concomitant]
  4. PROVENGE [Suspect]
     Dosage: 250 ML, SINGLE, INTRAVENOUS
     Route: 042
     Dates: start: 20101028, end: 20101028
  5. NILUTAMIDE (NILUTAMIDE) [Suspect]
     Dates: start: 20101201, end: 20110201
  6. PROVENGE [Suspect]
     Indication: PROSTATE CANCER METASTATIC
     Dosage: 250 ML, SINGLE, INTRAVENOUS
     Route: 042
     Dates: start: 20101014, end: 20101014

REACTIONS (7)
  - DECREASED APPETITE [None]
  - LYMPHADENOPATHY [None]
  - CHILLS [None]
  - ACUTE HEPATIC FAILURE [None]
  - DISEASE PROGRESSION [None]
  - DYSPNOEA [None]
  - PYREXIA [None]
